FAERS Safety Report 5301223-X (Version None)
Quarter: 2007Q1

REPORT INFORMATION
  Report Type: 
  Country: None (occurrence: None)
  Receive Date: 20070201
  Receipt Date: 20061219
  Transmission Date: 20070707
  Serious: No
  Sender: FDA-Public Use
  Company Number: 2006PV027171

PATIENT
  Age: 66 Year
  Sex: Female
  Weight: 111.5849 kg

DRUGS (2)
  1. BYETTA [Suspect]
     Indication: GLUCOSE TOLERANCE IMPAIRED
     Dosage: 5 MCG;BID;SC
     Route: 058
     Dates: start: 20060901
  2. SYNTHROID [Concomitant]

REACTIONS (2)
  - ANOREXIA [None]
  - GASTROOESOPHAGEAL REFLUX DISEASE [None]
